FAERS Safety Report 23784586 (Version 4)
Quarter: 2024Q2

REPORT INFORMATION
  Report Type: Report from Study
  Country: HU (occurrence: HU)
  Receive Date: 20240425
  Receipt Date: 20240604
  Transmission Date: 20240716
  Serious: Yes (Death, Life-Threatening, Hospitalization, Other)
  Sender: FDA-Public Use
  Company Number: HU-TAKEDA-2024TUS038997

PATIENT
  Age: 73 Year
  Sex: Female
  Weight: 85 kg

DRUGS (6)
  1. FRUQUINTINIB [Suspect]
     Active Substance: FRUQUINTINIB
     Indication: Colorectal cancer metastatic
     Dosage: 5 MILLIGRAM, QD
     Route: 065
     Dates: start: 20240327, end: 20240404
  2. FRUQUINTINIB [Suspect]
     Active Substance: FRUQUINTINIB
     Indication: Colorectal cancer
  3. APIXABAN [Concomitant]
     Active Substance: APIXABAN
     Indication: Pulmonary embolism
     Dosage: 10 MILLIGRAM
     Route: 065
     Dates: start: 2002
  4. PROPAFENONE [Concomitant]
     Active Substance: PROPAFENONE
     Indication: Atrial fibrillation
     Dosage: 300 MILLIGRAM
     Route: 065
     Dates: start: 2018
  5. BISOPROLOL [Concomitant]
     Active Substance: BISOPROLOL\BISOPROLOL FUMARATE
     Indication: Atrial fibrillation
     Dosage: 10 MILLIGRAM
     Route: 065
  6. FUROSEMIDE [Concomitant]
     Active Substance: FUROSEMIDE
     Indication: Cardiac failure
     Dosage: 40 MILLIGRAM
     Route: 065

REACTIONS (2)
  - Colorectal cancer metastatic [Fatal]
  - Asthenia [Fatal]

NARRATIVE: CASE EVENT DATE: 20240404
